FAERS Safety Report 10496406 (Version 1)
Quarter: 2014Q4

REPORT INFORMATION
  Report Type: Spontaneous
  Country: SE (occurrence: SE)
  Receive Date: 20141003
  Receipt Date: 20141003
  Transmission Date: 20150528
  Serious: Yes (Hospitalization)
  Sender: FDA-Public Use
  Company Number: PHHY2014SE127525

PATIENT
  Age: 82 Year
  Sex: Male

DRUGS (3)
  1. METHOTREXATE [Concomitant]
     Active Substance: METHOTREXATE
     Indication: RHEUMATOID ARTHRITIS
     Dosage: 15 MG, WEEKLY
  2. METHYLPREDNISOLONE. [Suspect]
     Active Substance: METHYLPREDNISOLONE
     Indication: RHEUMATOID ARTHRITIS
     Route: 014
  3. PREDNISOLONE. [Concomitant]
     Active Substance: PREDNISOLONE
     Indication: RHEUMATOID ARTHRITIS
     Dosage: 20 MG, DAILY
     Route: 048

REACTIONS (14)
  - Purulent discharge [Recovering/Resolving]
  - Subcutaneous abscess [Recovering/Resolving]
  - Chills [Unknown]
  - Pulmonary oedema [Recovering/Resolving]
  - Soft tissue infection [Recovering/Resolving]
  - Tendon disorder [Recovering/Resolving]
  - Legionella infection [Recovering/Resolving]
  - Lung consolidation [Recovering/Resolving]
  - Pyrexia [Unknown]
  - Myalgia [Unknown]
  - Wound [Recovering/Resolving]
  - Joint swelling [Recovering/Resolving]
  - White blood cell count increased [Recovering/Resolving]
  - Peripheral swelling [Recovering/Resolving]
